FAERS Safety Report 4803407-3 (Version None)
Quarter: 2005Q4

REPORT INFORMATION
  Report Type: 
  Country: None (occurrence: None)
  Receive Date: 20051019
  Receipt Date: 20051011
  Transmission Date: 20060501
  Serious: Yes (Other)
  Sender: FDA-Public Use
  Company Number: DE-JNJFOC-20051002849

PATIENT
  Sex: Female
  Weight: 60 kg

DRUGS (1)
  1. HALDOL-JANSSEN FORTE 10 MG [Suspect]
     Indication: DRUG USE FOR UNKNOWN INDICATION
     Dosage: 80 -90 ML ( TOTAL AMOUNT UNKNOWN)
     Route: 048

REACTIONS (4)
  - CONVULSION [None]
  - OVERDOSE [None]
  - SUICIDE ATTEMPT [None]
  - VOMITING [None]
